FAERS Safety Report 4575034-7 (Version None)
Quarter: 2005Q1

REPORT INFORMATION
  Report Type: 
  Country: None (occurrence: None)
  Receive Date: 20050208
  Receipt Date: 20050125
  Transmission Date: 20050727
  Serious: Yes (Hospitalization, Other)
  Sender: FDA-Public Use
  Company Number: JP-MERCK-0501USA04329

PATIENT
  Age: 78 Year
  Sex: Male

DRUGS (4)
  1. COZAAR [Suspect]
     Indication: ESSENTIAL HYPERTENSION
     Route: 048
     Dates: end: 20050113
  2. ZOCOR [Suspect]
     Indication: HYPERLIPIDAEMIA
     Route: 048
     Dates: end: 20050113
  3. CALBLOCK [Suspect]
     Route: 048
     Dates: start: 20050113
  4. MEVALOTIN [Suspect]
     Route: 048
     Dates: start: 20050113

REACTIONS (5)
  - ANGINA PECTORIS [None]
  - BRONCHITIS ACUTE [None]
  - PHARYNGITIS [None]
  - RHABDOMYOLYSIS [None]
  - RHINITIS ALLERGIC [None]
